FAERS Safety Report 13252304 (Version 1)
Quarter: 2017Q1

REPORT INFORMATION
  Report Type: Spontaneous
  Country: CH (occurrence: CH)
  Receive Date: 20170220
  Receipt Date: 20170220
  Transmission Date: 20170428
  Serious: Yes (Other)
  Sender: FDA-Public Use
  Company Number: CH-BAYER-2017-018635

PATIENT

DRUGS (2)
  1. XOFIGO [Suspect]
     Active Substance: RADIUM RA-223 DICHLORIDE
     Dosage: DAILY DOSE 4.4 MBQ
     Dates: start: 20161202, end: 20161202
  2. XOFIGO [Suspect]
     Active Substance: RADIUM RA-223 DICHLORIDE
     Dosage: DAILY DOSE 4.4 MBQ
     Dates: start: 20161229, end: 20161229

REACTIONS (2)
  - Neurological symptom [None]
  - Spinal fracture [None]
